FAERS Safety Report 15948401 (Version 7)
Quarter: 2020Q1

REPORT INFORMATION
  Report Type: Report from Study
  Country: US (occurrence: US)
  Receive Date: 20190211
  Receipt Date: 20200205
  Transmission Date: 20200409
  Serious: Yes (Hospitalization)
  Sender: FDA-Public Use
  Company Number: US-SA-2018SA096173

PATIENT
  Age: 56 Year
  Sex: Female

DRUGS (5)
  1. TERIFLUNOMIDE. [Suspect]
     Active Substance: TERIFLUNOMIDE
     Indication: SPONDYLOARTHROPATHY
     Dosage: 14 MG, QD
     Route: 048
     Dates: start: 2017
  2. TERIFLUNOMIDE. [Suspect]
     Active Substance: TERIFLUNOMIDE
     Dosage: 14 MG, QD
     Route: 048
  3. TERIFLUNOMIDE. [Suspect]
     Active Substance: TERIFLUNOMIDE
     Dosage: 14 MG, QD
     Route: 048
     Dates: start: 20180403
  4. TERIFLUNOMIDE. [Suspect]
     Active Substance: TERIFLUNOMIDE
     Indication: MULTIPLE SCLEROSIS
     Dosage: 14 MG, QD
     Route: 048
  5. TERIFLUNOMIDE. [Suspect]
     Active Substance: TERIFLUNOMIDE
     Dosage: 14 MG, QD
     Route: 048
     Dates: start: 20180328

REACTIONS (12)
  - Sinusitis [Recovering/Resolving]
  - Depression [Unknown]
  - Cough [Unknown]
  - Product dose omission [Not Recovered/Not Resolved]
  - Paraesthesia [Unknown]
  - Nasopharyngitis [Recovering/Resolving]
  - Unevaluable event [Not Recovered/Not Resolved]
  - Mobility decreased [Not Recovered/Not Resolved]
  - Gastroenteritis viral [Not Recovered/Not Resolved]
  - Hypoaesthesia [Not Recovered/Not Resolved]
  - Product use in unapproved indication [Unknown]
  - Nasal congestion [Unknown]

NARRATIVE: CASE EVENT DATE: 20180326
